FAERS Safety Report 23080375 (Version 6)
Quarter: 2024Q4

REPORT INFORMATION
  Report Type: Spontaneous
  Country: JP (occurrence: JP)
  Receive Date: 20231018
  Receipt Date: 20241211
  Transmission Date: 20250115
  Serious: Yes (Death, Life-Threatening, Hospitalization, Disabling, Congenital Anomaly, Other)
  Sender: ALEXION PHARMACEUTICALS
  Company Number: 2023A233614

PATIENT
  Age: 72 Year
  Weight: 55 kg

DRUGS (24)
  1. IMFINZI [Suspect]
     Active Substance: DURVALUMAB
     Indication: Bile duct cancer
     Dosage: 1500 MILLIGRAM, Q3W
  2. IMFINZI [Suspect]
     Active Substance: DURVALUMAB
     Dosage: 1500 MILLIGRAM, Q3W
     Route: 042
  3. IMFINZI [Suspect]
     Active Substance: DURVALUMAB
     Dosage: 1500 MILLIGRAM, Q3W
  4. IMFINZI [Suspect]
     Active Substance: DURVALUMAB
     Dosage: 1500 MILLIGRAM, Q3W
     Route: 042
  5. ADRENAL [Suspect]
     Active Substance: EPINEPHRINE
     Indication: Immune-mediated myocarditis
     Dosage: DOSE UNKNOWN
     Route: 065
  6. ADRENAL [Suspect]
     Active Substance: EPINEPHRINE
     Dosage: DOSE UNKNOWN
     Route: 065
  7. TACROLIMUS [Suspect]
     Active Substance: TACROLIMUS
     Indication: Immune-mediated myocarditis
     Route: 065
  8. TACROLIMUS [Suspect]
     Active Substance: TACROLIMUS
     Route: 065
  9. CISPLATIN [Concomitant]
     Active Substance: CISPLATIN
     Indication: Bile duct cancer
     Dosage: 25 MILLIGRAM, UNK
  10. CISPLATIN [Concomitant]
     Active Substance: CISPLATIN
     Indication: Bile duct cancer
     Dosage: 25 MILLIGRAM, UNK
     Route: 042
  11. CISPLATIN [Concomitant]
     Active Substance: CISPLATIN
     Dosage: 25 MILLIGRAM, UNK
  12. CISPLATIN [Concomitant]
     Active Substance: CISPLATIN
     Dosage: 25 MILLIGRAM, UNK
     Route: 042
  13. CISPLATIN [Concomitant]
     Active Substance: CISPLATIN
     Dosage: 25 MILLIGRAM
  14. CISPLATIN [Concomitant]
     Active Substance: CISPLATIN
     Dosage: 25 MILLIGRAM
     Route: 041
  15. CISPLATIN [Concomitant]
     Active Substance: CISPLATIN
     Dosage: 25 MILLIGRAM
  16. CISPLATIN [Concomitant]
     Active Substance: CISPLATIN
     Dosage: 25 MILLIGRAM
     Route: 041
  17. GEMCITABINE HYDROCHLORIDE [Concomitant]
     Active Substance: GEMCITABINE HYDROCHLORIDE
     Indication: Bile duct cancer
     Dosage: 1000 MILLIGRAM, UNK
  18. GEMCITABINE HYDROCHLORIDE [Concomitant]
     Active Substance: GEMCITABINE HYDROCHLORIDE
     Indication: Bile duct cancer
     Dosage: 1000 MILLIGRAM, UNK
     Route: 042
  19. GEMCITABINE HYDROCHLORIDE [Concomitant]
     Active Substance: GEMCITABINE HYDROCHLORIDE
     Dosage: 1000 MILLIGRAM, UNK
  20. GEMCITABINE HYDROCHLORIDE [Concomitant]
     Active Substance: GEMCITABINE HYDROCHLORIDE
     Dosage: 1000 MILLIGRAM, UNK
     Route: 042
  21. GEMCITABINE HYDROCHLORIDE [Concomitant]
     Active Substance: GEMCITABINE HYDROCHLORIDE
     Dosage: 1000 MILLIGRAM
  22. GEMCITABINE HYDROCHLORIDE [Concomitant]
     Active Substance: GEMCITABINE HYDROCHLORIDE
     Dosage: 1000 MILLIGRAM
     Route: 041
  23. GEMCITABINE HYDROCHLORIDE [Concomitant]
     Active Substance: GEMCITABINE HYDROCHLORIDE
     Dosage: 1000 MILLIGRAM
  24. GEMCITABINE HYDROCHLORIDE [Concomitant]
     Active Substance: GEMCITABINE HYDROCHLORIDE
     Dosage: 1000 MILLIGRAM
     Route: 041

REACTIONS (17)
  - Jugular vein distension [Unknown]
  - Circulatory collapse [Unknown]
  - Immune-mediated myocarditis [Not Recovered/Not Resolved]
  - Cardiogenic shock [Unknown]
  - Tachycardia [Recovering/Resolving]
  - Respiratory failure [Unknown]
  - Intestinal gangrene [Not Recovered/Not Resolved]
  - Anal infection [Not Recovered/Not Resolved]
  - Impaired healing [Not Recovered/Not Resolved]
  - Cardio-respiratory arrest [Recovered/Resolved]
  - Intestinal ischaemia [Recovered/Resolved with Sequelae]
  - Necrotising fasciitis [Fatal]
  - Wheezing [Unknown]
  - Peripheral coldness [Unknown]
  - Hyperhidrosis [Unknown]
  - Cardiac dysfunction [Unknown]
  - Pulmonary congestion [Unknown]
